FAERS Safety Report 6882732-9 (Version None)
Quarter: 2010Q3

REPORT INFORMATION
  Report Type: 
  Country: None (occurrence: None)
  Receive Date: 20100702
  Receipt Date: 20080813
  Transmission Date: 20110219
  Serious: No
  Sender: FDA-Public Use
  Company Number: 2008-00103

PATIENT
  Age: 38 Year
  Sex: Female
  Weight: 71.2147 kg

DRUGS (2)
  1. ZICAM COLD REMEDY NASAL GEL [Suspect]
     Indication: NASOPHARYNGITIS
     Dosage: 1 DOSE
     Dates: start: 20080813, end: 20080813
  2. BIRTH CONTROL [Concomitant]

REACTIONS (4)
  - AGEUSIA [None]
  - ANOSMIA [None]
  - BURNING SENSATION [None]
  - PAIN [None]
